FAERS Safety Report 6552167-7 (Version None)
Quarter: 2010Q1

REPORT INFORMATION
  Report Type: 
  Country: None (occurrence: None)
  Receive Date: 20100126
  Receipt Date: 20100115
  Transmission Date: 20100710
  Serious: Yes (Hospitalization)
  Sender: FDA-Public Use
  Company Number: CH-PFIZER INC-2010005691

PATIENT
  Age: 95 Year
  Sex: Female

DRUGS (5)
  1. ALDACTONE [Suspect]
     Dosage: 1 DF, 1X/DAY
     Route: 048
     Dates: end: 20091024
  2. TORSEMIDE [Suspect]
     Dosage: 1 DF, 1X/DAY
     Route: 048
  3. ENATEC [Suspect]
     Dosage: 10 MG, 1X/DAY
     Route: 048
     Dates: end: 20091024
  4. SINTROM [Suspect]
     Dosage: UNK
     Route: 048
     Dates: end: 20091024
  5. DIGOXIN [Concomitant]
     Dosage: UNK
     Route: 048

REACTIONS (4)
  - ANAEMIA [None]
  - HAEMATOMA [None]
  - HYPERKALAEMIA [None]
  - RENAL FAILURE ACUTE [None]
